FAERS Safety Report 9452525 (Version 1)
Quarter: 2013Q3

REPORT INFORMATION
  Report Type: Spontaneous
  Country: US (occurrence: US)
  Receive Date: 20130812
  Receipt Date: 20130812
  Transmission Date: 20140515
  Serious: No
  Sender: FDA-Public Use
  Company Number: US-PFIZER INC-2013229006

PATIENT
  Age: 62 Year
  Sex: Male

DRUGS (9)
  1. HYDROCHLOROTHIAZIDE [Suspect]
     Dosage: UNK
  2. LYRICA [Suspect]
     Dosage: UNK
  3. NEURONTIN [Suspect]
     Dosage: UNK
  4. SIMVASTATIN [Suspect]
     Dosage: UNK
  5. TRAZODONE HCL [Suspect]
     Dosage: UNK
  6. VENLAFAXINE HCL [Suspect]
     Dosage: UNK
  7. ZYPREXA [Suspect]
     Dosage: UNK
  8. NAPROSYN [Suspect]
     Dosage: UNK
  9. CODEINE [Suspect]
     Dosage: UNK

REACTIONS (1)
  - Drug hypersensitivity [Unknown]
